FAERS Safety Report 25095787 (Version 1)
Quarter: 2025Q1

REPORT INFORMATION
  Report Type: Spontaneous
  Country: US (occurrence: US)
  Receive Date: 20250319
  Receipt Date: 20250319
  Transmission Date: 20250408
  Serious: Yes (Life-Threatening, Hospitalization)
  Sender: DR REDDYS
  Company Number: None

PATIENT
  Age: 66 Year
  Sex: Female

DRUGS (1)
  1. HEPARIN [Suspect]
     Active Substance: HEPARIN SODIUM
     Indication: Thrombosis prophylaxis

REACTIONS (5)
  - Heparin-induced thrombocytopenia [Recovering/Resolving]
  - Hypercoagulation [Recovering/Resolving]
  - Postoperative thrombosis [Recovering/Resolving]
  - Procedural haemorrhage [Recovering/Resolving]
  - Deep vein thrombosis [Recovering/Resolving]
